FAERS Safety Report 24281919 (Version 1)
Quarter: 2024Q3

REPORT INFORMATION
  Report Type: Spontaneous
  Country: BR (occurrence: BR)
  Receive Date: 20240904
  Receipt Date: 20240904
  Transmission Date: 20241017
  Serious: Yes (Other)
  Sender: CHEPLAPHARM
  Company Number: BR-ROCHE-10000066353

PATIENT
  Age: 55 Year
  Sex: Female

DRUGS (2)
  1. CLONAZEPAM [Suspect]
     Active Substance: CLONAZEPAM
     Indication: Product used for unknown indication
  2. OCREVUS [Suspect]
     Active Substance: OCRELIZUMAB
     Indication: Multiple sclerosis relapse
     Route: 042
     Dates: start: 202211

REACTIONS (11)
  - Cataract [Unknown]
  - Asthenia [Unknown]
  - Gastritis [Unknown]
  - Oesophagitis [Unknown]
  - Discouragement [Unknown]
  - Disturbance in attention [Unknown]
  - Pain in extremity [Unknown]
  - Constipation [Unknown]
  - Memory impairment [Unknown]
  - Urine output decreased [Unknown]
  - Micturition urgency [Unknown]

NARRATIVE: CASE EVENT DATE: 20231001
